FAERS Safety Report 4572963-5 (Version None)
Quarter: 2005Q1

REPORT INFORMATION
  Report Type: 
  Country: None (occurrence: None)
  Receive Date: 20050203
  Receipt Date: 20050124
  Transmission Date: 20050727
  Serious: Yes (Hospitalization)
  Sender: FDA-Public Use
  Company Number: 2005US000120

PATIENT
  Age: 13 Year
  Sex: Male

DRUGS (7)
  1. AMBISOME [Suspect]
     Indication: FUNGAL INFECTION
     Dosage: 30.00 MG UID/QD INTRAVENOUS
     Route: 042
     Dates: start: 20031001, end: 20031010
  2. VINCRISTINE [Concomitant]
  3. CIPROFLOXACIN [Concomitant]
  4. VANCOMYCIN [Concomitant]
  5. METRONIDAZOLE [Concomitant]
  6. RANITIDINE [Concomitant]
  7. SEPTRA [Concomitant]

REACTIONS (6)
  - DERMATITIS EXFOLIATIVE [None]
  - INFUSION SITE ERYTHEMA [None]
  - INFUSION SITE INFLAMMATION [None]
  - INFUSION SITE SWELLING [None]
  - INJECTION SITE EXTRAVASATION [None]
  - INJECTION SITE VESICLES [None]
